FAERS Safety Report 25853703 (Version 1)
Quarter: 2025Q3

REPORT INFORMATION
  Report Type: Spontaneous
  Country: EU (occurrence: EU)
  Receive Date: 20250926
  Receipt Date: 20250926
  Transmission Date: 20251020
  Serious: Yes (Hospitalization)
  Sender: INTERCHEM
  Company Number: EU-HQ SPECIALTY-GR-2025INT000069

PATIENT
  Age: 74 Year
  Sex: Male

DRUGS (2)
  1. DEXMEDETOMIDINE HYDROCHLORIDE [Suspect]
     Active Substance: DEXMEDETOMIDINE HYDROCHLORIDE
     Indication: Sedation
     Route: 042
  2. DEXMEDETOMIDINE HYDROCHLORIDE [Suspect]
     Active Substance: DEXMEDETOMIDINE HYDROCHLORIDE
     Route: 042

REACTIONS (1)
  - Delayed recovery from anaesthesia [Recovered/Resolved]
